FAERS Safety Report 8052022-X (Version None)
Quarter: 2012Q1

REPORT INFORMATION
  Report Type: 
  Country: None (occurrence: None)
  Receive Date: 20120111
  Receipt Date: 20111110
  Transmission Date: 20120608
  Serious: Yes (Other)
  Sender: FDA-Public Use
  Company Number: GB-DEXPHARM-20111723

PATIENT
  Age: 52 Year
  Sex: Male

DRUGS (2)
  1. DICLOFENAC [Suspect]
     Indication: PAIN
     Dosage: 50 MG MILLGRAM(S) 3 IN 1 DAY
     Dates: start: 20111101
  2. PROXICAM [Concomitant]

REACTIONS (2)
  - ANTISOCIAL BEHAVIOUR [None]
  - DISINHIBITION [None]
